FAERS Safety Report 15140185 (Version 1)
Quarter: 2018Q3

REPORT INFORMATION
  Report Type: Report from Study
  Country: DE (occurrence: DE)
  Receive Date: 20180713
  Receipt Date: 20180713
  Transmission Date: 20181010
  Serious: Yes (Hospitalization)
  Sender: FDA-Public Use
  Company Number: DE-TEVA-2018-DE-923988

PATIENT
  Age: 62 Year
  Sex: Female
  Weight: 120 kg

DRUGS (14)
  1. DOXORUBICIN [Suspect]
     Active Substance: DOXORUBICIN
     Route: 042
     Dates: start: 20150423, end: 20150423
  2. PREDNISONE. [Suspect]
     Active Substance: PREDNISONE
     Dosage: 2ND CYCLE
     Route: 048
     Dates: start: 201504, end: 201504
  3. RITUXIMAB. [Suspect]
     Active Substance: RITUXIMAB
     Indication: LYMPHOMA
     Route: 058
     Dates: start: 20150422
  4. MABTHERA [Suspect]
     Active Substance: RITUXIMAB
     Route: 042
     Dates: start: 20150323
  5. PEGFILGRASTIM [Concomitant]
     Active Substance: PEGFILGRASTIM
     Indication: PROPHYLAXIS
     Route: 058
     Dates: start: 20150327, end: 20150327
  6. VINCRISTINE [Suspect]
     Active Substance: VINCRISTINE
     Indication: LYMPHOMA
     Route: 042
     Dates: start: 20150326, end: 20150423
  7. PREDNISONE. [Suspect]
     Active Substance: PREDNISONE
     Dosage: FIRST CYCLE
     Route: 048
     Dates: start: 20150326, end: 20150330
  8. MABTHERA [Suspect]
     Active Substance: RITUXIMAB
     Dosage: DAILY DOSE: 1400 MG MILLGRAM(S) EVERY 2 WEEKS
     Route: 058
     Dates: start: 20150422
  9. COTRIM [Concomitant]
     Active Substance: SULFAMETHOXAZOLE\TRIMETHOPRIM
     Indication: PROPHYLAXIS
     Route: 048
     Dates: start: 20150327
  10. PREDNISONE. [Suspect]
     Active Substance: PREDNISONE
     Dosage: 3RD CYCLE
     Route: 048
     Dates: start: 20150423, end: 20150427
  11. CYCLOPHOSPHAMIDE. [Suspect]
     Active Substance: CYCLOPHOSPHAMIDE
     Indication: LYMPHOMA
     Route: 042
     Dates: start: 20150326, end: 20150326
  12. DOXORUBICIN [Suspect]
     Active Substance: DOXORUBICIN
     Indication: LYMPHOMA
     Route: 042
     Dates: start: 20150326, end: 20150326
  13. CYCLOPHOSPHAMIDE. [Suspect]
     Active Substance: CYCLOPHOSPHAMIDE
     Dosage: DAILY DOSE: 1500 MG MILLGRAM(S) EVERY 2 WEEKS
     Route: 042
     Dates: start: 20150423, end: 20150423
  14. MABTHERA [Suspect]
     Active Substance: RITUXIMAB
     Route: 042
     Dates: start: 20150325

REACTIONS (4)
  - Febrile neutropenia [Recovered/Resolved]
  - Pyrexia [Recovered/Resolved]
  - Urinary tract infection [Recovering/Resolving]
  - Febrile infection [Recovered/Resolved]

NARRATIVE: CASE EVENT DATE: 20150331
